FAERS Safety Report 25849237 (Version 2)
Quarter: 2025Q4

REPORT INFORMATION
  Report Type: Spontaneous
  Country: EU (occurrence: EU)
  Receive Date: 20250925
  Receipt Date: 20251030
  Transmission Date: 20260118
  Serious: Yes (Death, Other)
  Sender: EMD SERONO INC
  Company Number: EU-Merck Healthcare KGaA-2025047316

PATIENT
  Age: 66 Year
  Sex: Female

DRUGS (2)
  1. REBIF [Suspect]
     Active Substance: INTERFERON BETA-1A
     Indication: Relapsing-remitting multiple sclerosis
     Dates: start: 20240701, end: 20240924
  2. REBIF [Suspect]
     Active Substance: INTERFERON BETA-1A
     Dates: start: 20240924, end: 20250604

REACTIONS (5)
  - Metastases to meninges [Fatal]
  - Essential hypertension [Not Recovered/Not Resolved]
  - Breast cancer female [Not Recovered/Not Resolved]
  - Metastases to central nervous system [Not Recovered/Not Resolved]
  - Magnetic resonance imaging abnormal [Not Recovered/Not Resolved]

NARRATIVE: CASE EVENT DATE: 20250101
